FAERS Safety Report 8403629-9 (Version None)
Quarter: 2012Q2

REPORT INFORMATION
  Report Type: 
  Country: None (occurrence: None)
  Receive Date: 20120601
  Receipt Date: 20120521
  Transmission Date: 20120825
  Serious: Yes (Other)
  Sender: FDA-Public Use
  Company Number: US-NAPPMUNDI-USA-2012-0087548

PATIENT
  Sex: Female

DRUGS (3)
  1. BUTRANS [Suspect]
     Dosage: 5 MCG/HR, UNK
     Route: 062
     Dates: start: 20120419
  2. BUTRANS [Suspect]
     Indication: PAIN
     Dosage: 10 MCG/HR, UNK
     Route: 062
     Dates: start: 20120419
  3. BUTRANS [Suspect]
     Dosage: 10 MCG/HR, UNK
     Route: 062

REACTIONS (6)
  - DRUG INEFFECTIVE [None]
  - APPLICATION SITE EROSION [None]
  - PRODUCT ADHESION ISSUE [None]
  - STAPHYLOCOCCAL INFECTION [None]
  - PRODUCT PHYSICAL ISSUE [None]
  - APPLICATION SITE VESICLES [None]
